FAERS Safety Report 4780182-2 (Version None)
Quarter: 2005Q3

REPORT INFORMATION
  Report Type: 
  Country: None (occurrence: None)
  Receive Date: 20050914
  Receipt Date: 20050425
  Transmission Date: 20060218
  Serious: Yes (Hospitalization)
  Sender: FDA-Public Use
  Company Number: 163-20785-05040498

PATIENT
  Age: 52 Year
  Sex: Male
  Weight: 93 kg

DRUGS (12)
  1. THALOMID [Suspect]
     Indication: MULTIPLE MYELOMA
     Dosage: 100 MG, DAILY, ORAL
     Route: 048
     Dates: start: 20040223, end: 20040419
  2. THALOMID [Suspect]
     Indication: MULTIPLE MYELOMA
     Dosage: 100 MG, DAILY, ORAL
     Route: 048
     Dates: end: 20040622
  3. VINCRISTINE [Suspect]
     Indication: MULTIPLE MYELOMA
     Dosage: SEE IMAGE
     Route: 042
  4. ADRIAMYCIN PFS [Suspect]
     Dosage: SEE IMAGE
     Route: 042
  5. DEXAMETHASONE [Suspect]
     Indication: MULTIPLE MYELOMA
     Dosage: SEE IMAGE
     Route: 048
  6. DEXAMETHASONE [Concomitant]
  7. MULTIVITAMIN [Concomitant]
  8. PRILOSEC [Concomitant]
  9. BEXTRA [Concomitant]
  10. WARFARIN SODIUM [Concomitant]
  11. COLACE (DOCUSATE SODIUM) [Concomitant]
  12. SENOKOT [Concomitant]

REACTIONS (4)
  - DEEP VEIN THROMBOSIS [None]
  - NEUTROPENIA [None]
  - PAIN IN EXTREMITY [None]
  - TENDERNESS [None]
